FAERS Safety Report 15713093 (Version 1)
Quarter: 2018Q4

REPORT INFORMATION
  Report Type: Spontaneous
  Country: SE (occurrence: SE)
  Receive Date: 20181212
  Receipt Date: 20181212
  Transmission Date: 20190205
  Serious: Yes (Other)
  Sender: FDA-Public Use
  Company Number: PHHY2018SE179878

PATIENT
  Age: 45 Year
  Sex: Female

DRUGS (1)
  1. COSENTYX [Suspect]
     Active Substance: SECUKINUMAB
     Indication: ARTHRITIS ENTEROPATHIC
     Dosage: 150 MG, UNK
     Route: 065
     Dates: start: 201805, end: 201808

REACTIONS (3)
  - Product use in unapproved indication [Unknown]
  - Diarrhoea [Recovering/Resolving]
  - Pouchitis [Recovering/Resolving]

NARRATIVE: CASE EVENT DATE: 201805
